FAERS Safety Report 7072079-2 (Version None)
Quarter: 2010Q4

REPORT INFORMATION
  Report Type: 
  Country: None (occurrence: None)
  Receive Date: 20101029
  Receipt Date: 20100104
  Transmission Date: 20110411
  Serious: No
  Sender: FDA-Public Use
  Company Number: A0832272A

PATIENT
  Age: 75 Year
  Sex: Male

DRUGS (15)
  1. ADVAIR DISKUS 100/50 [Suspect]
     Indication: PULMONARY HYPERTENSION
     Dosage: 1PUFF TWICE PER DAY
     Route: 055
     Dates: start: 20091101
  2. VITAMIN D [Suspect]
     Indication: PRODUCT USED FOR UNKNOWN INDICATION
     Route: 065
  3. COREG [Concomitant]
  4. LASIX [Concomitant]
  5. NEXIUM [Concomitant]
  6. FLOMAX [Concomitant]
  7. LIPITOR [Concomitant]
  8. RAMIPRIL [Concomitant]
  9. POTASSIUM CHLORIDE [Concomitant]
  10. CALCIUM [Concomitant]
  11. MULTI-VITAMIN [Concomitant]
  12. LOVAZA [Concomitant]
  13. ASPIRIN [Concomitant]
  14. SINGULAIR [Concomitant]
  15. CETIRIZINE HCL [Concomitant]

REACTIONS (3)
  - BLISTER [None]
  - DYSPHONIA [None]
  - ERYTHEMA [None]
